FAERS Safety Report 7761185-2 (Version None)
Quarter: 2011Q3

REPORT INFORMATION
  Report Type: 
  Country: None (occurrence: None)
  Receive Date: 20110915
  Receipt Date: 20110913
  Transmission Date: 20111222
  Serious: Yes (Death, Hospitalization)
  Sender: FDA-Public Use
  Company Number: 2008SP009046

PATIENT
  Age: 74 Year
  Sex: Male
  Weight: 63 kg

DRUGS (7)
  1. SULFAMETHOXAZOLE [Concomitant]
  2. MAGMITT [Concomitant]
  3. TEMODAL [Suspect]
     Indication: GLIOBLASTOMA
     Dosage: 120 MG, QD, PO
     Route: 048
     Dates: start: 20080204, end: 20080316
  4. ZONISAMIDE [Suspect]
     Indication: PROPHYLAXIS
     Dosage: 200 MG, BID, PO
     Route: 048
     Dates: start: 20080107, end: 20080411
  5. ZONISAMIDE [Suspect]
     Indication: EPILEPSY
     Dosage: 200 MG, BID, PO
     Route: 048
     Dates: start: 20080107, end: 20080411
  6. NORVASC [Concomitant]
  7. CANDESARTAN CILEXETIL [Concomitant]

REACTIONS (6)
  - THROMBOCYTOPENIA [None]
  - INTRACRANIAL TUMOUR HAEMORRHAGE [None]
  - ANAEMIA [None]
  - MYDRIASIS [None]
  - BONE MARROW FAILURE [None]
  - LEUKOPENIA [None]
